FAERS Safety Report 6451641-1 (Version None)
Quarter: 2009Q4

REPORT INFORMATION
  Report Type: 
  Country: None (occurrence: None)
  Receive Date: 20091123
  Receipt Date: 20091116
  Transmission Date: 20100525
  Serious: Yes (Hospitalization, Other)
  Sender: FDA-Public Use
  Company Number: PHHY2009FR42860

PATIENT
  Age: 60 Year
  Sex: Male
  Weight: 78 kg

DRUGS (2)
  1. GLEEVEC [Suspect]
     Indication: CHRONIC MYELOID LEUKAEMIA
     Dosage: 400 MG DAILY
  2. AUGMENTIN                               /SCH/ [Concomitant]

REACTIONS (15)
  - ABDOMINAL PAIN [None]
  - BILE DUCT STONE [None]
  - CHILLS [None]
  - CHOLANGITIS [None]
  - COLON CANCER [None]
  - COLORECTAL CANCER METASTATIC [None]
  - IMPAIRED HEALING [None]
  - LAPAROSCOPY [None]
  - LARGE INTESTINE ANASTOMOSIS [None]
  - LIVER DISORDER [None]
  - MALIGNANT TUMOUR EXCISION [None]
  - METASTASES TO LIVER [None]
  - PROCTOCOLECTOMY [None]
  - PYREXIA [None]
  - RECTAL HAEMORRHAGE [None]
